FAERS Safety Report 6214878-2 (Version None)
Quarter: 2009Q2

REPORT INFORMATION
  Report Type: 
  Country: None (occurrence: None)
  Receive Date: 20090601
  Receipt Date: 20090107
  Transmission Date: 20091009
  Serious: Yes (Other)
  Sender: FDA-Public Use
  Company Number: 277274

PATIENT
  Age: 61 Year
  Sex: Female
  Weight: 91.6 kg

DRUGS (8)
  1. ACTIVELLA [Suspect]
     Indication: MENOPAUSAL SYMPTOMS
     Dosage: ORAL
     Route: 048
     Dates: start: 20040221, end: 20060506
  2. PREMPRO [Suspect]
     Indication: MENOPAUSAL SYMPTOMS
     Dosage: ORAL
     Route: 048
     Dates: start: 19980206, end: 20020607
  3. PREMPRO [Suspect]
     Indication: MENOPAUSAL SYMPTOMS
     Dosage: ORAL
     Route: 048
     Dates: start: 20020705, end: 20040120
  4. PREMARIN [Suspect]
     Indication: MENOPAUSAL SYMPTOMS
     Dosage: ORAL
     Route: 048
     Dates: start: 19970128, end: 19980102
  5. PROVERA [Suspect]
     Indication: MENOPAUSAL SYMPTOMS
     Dosage: ORAL
     Route: 048
     Dates: start: 19970128, end: 19980102
  6. ESTRADERM [Suspect]
     Indication: HORMONE REPLACEMENT THERAPY
  7. CALCIUM (CALCIUM) [Concomitant]
  8. ERGOCALCIFEROL [Concomitant]

REACTIONS (1)
  - BREAST CANCER [None]
